FAERS Safety Report 7739154-8 (Version None)
Quarter: 2011Q3

REPORT INFORMATION
  Report Type: 
  Country: None (occurrence: None)
  Receive Date: 20110909
  Receipt Date: 20070105
  Transmission Date: 20111222
  Serious: No
  Sender: FDA-Public Use
  Company Number: 2007BI000727

PATIENT
  Sex: Female

DRUGS (4)
  1. TYSABRI [Suspect]
     Indication: MULTIPLE SCLEROSIS
     Route: 042
     Dates: start: 20050117, end: 20050617
  2. AVONEX [Concomitant]
     Indication: MULTIPLE SCLEROSIS
     Route: 030
     Dates: start: 20030616, end: 20050502
  3. TYSABRI [Suspect]
     Route: 042
     Dates: start: 20070117, end: 20110210
  4. TYSABRI [Suspect]
     Route: 042
     Dates: start: 20110804

REACTIONS (4)
  - GAIT DISTURBANCE [None]
  - WEIGHT DECREASED [None]
  - VOMITING [None]
  - DIARRHOEA [None]
